FAERS Safety Report 15357070 (Version 1)
Quarter: 2018Q3

REPORT INFORMATION
  Report Type: Spontaneous
  Country: JP (occurrence: JP)
  Receive Date: 20180906
  Receipt Date: 20180906
  Transmission Date: 20181010
  Serious: Yes (Other)
  Sender: FDA-Public Use
  Company Number: JP-PFIZER INC-2018353127

PATIENT

DRUGS (2)
  1. SELARA 50MG [Suspect]
     Active Substance: EPLERENONE
     Indication: CARDIAC FAILURE
  2. SELARA 50MG [Suspect]
     Active Substance: EPLERENONE
     Indication: HYPERTENSION
     Dosage: 50 MG, UNK
     Route: 048

REACTIONS (1)
  - Renal impairment [Unknown]
